FAERS Safety Report 9518533 (Version 1)
Quarter: 2013Q3

REPORT INFORMATION
  Report Type: Report from Study
  Country: BR (occurrence: BR)
  Receive Date: 20130912
  Receipt Date: 20130912
  Transmission Date: 20140515
  Serious: Yes (Other)
  Sender: FDA-Public Use
  Company Number: PHHY2013BR098532

PATIENT
  Age: 52 Year
  Sex: Female
  Weight: 72 kg

DRUGS (7)
  1. FORASEQ [Suspect]
     Dosage: UNK, BID
     Dates: start: 20090601
  2. BUDESONIDE [Suspect]
     Dosage: UNK BID FOR 4 YEARS
  3. LOSARTAN POTASSIUM+HYDROCHLOROTHIAZIDE [Suspect]
     Dosage: UNK UKN, UNK
  4. MIFLASONE [Suspect]
     Dosage: UNK
  5. CORTICOSTEROIDS [Suspect]
     Dosage: UNK
  6. PREDNISONE [Suspect]
     Dosage: UNK
  7. BENEFIX [Suspect]
     Dosage: UNK

REACTIONS (3)
  - Dyspnoea [Unknown]
  - Gastrooesophageal reflux disease [Unknown]
  - Rhinitis allergic [Unknown]
